FAERS Safety Report 11848314 (Version 1)
Quarter: 2015Q4

REPORT INFORMATION
  Report Type: Spontaneous
  Country: US (occurrence: US)
  Receive Date: 20151217
  Receipt Date: 20151217
  Transmission Date: 20160305
  Serious: Yes (Other)
  Sender: FDA-Public Use
  Company Number: US-HOSPIRA-2989755

PATIENT
  Age: 6 Year
  Sex: Male
  Weight: 24.95 kg

DRUGS (1)
  1. MORPHINE SULPHATE [Suspect]
     Active Substance: MORPHINE SULFATE
     Indication: PAIN
     Dosage: ONCE, 1 DOSE
     Route: 042
     Dates: start: 20150825

REACTIONS (1)
  - Hypersensitivity [Recovered/Resolved]

NARRATIVE: CASE EVENT DATE: 20150825
